FAERS Safety Report 8854564 (Version 1)
Quarter: 2012Q4

REPORT INFORMATION
  Report Type: Report from Study
  Country: US (occurrence: US)
  Receive Date: 20121023
  Receipt Date: 20121023
  Transmission Date: 20130627
  Serious: Yes (Life-Threatening, Hospitalization)
  Sender: FDA-Public Use
  Company Number: US-CELGENEUS-163-21880-12102288

PATIENT
  Age: 75 Year
  Sex: Male
  Weight: 84.5 kg

DRUGS (16)
  1. REVLIMID [Suspect]
     Indication: CLL
     Route: 048
  2. PLERIXAFOR [Suspect]
     Indication: CLL
     Dosage: 9 doses
     Route: 058
  3. ZOVIRAX [Concomitant]
     Indication: DRUG USE FOR UNKNOWN INDICATION
     Dosage: 400 Milligram
     Route: 048
  4. GABAPENTIN [Concomitant]
     Indication: DRUG USE FOR UNKNOWN INDICATION
     Dosage: 600 Milligram
     Route: 048
  5. LACTOBACILLUS [Concomitant]
     Indication: DRUG USE FOR UNKNOWN INDICATION
     Dosage: 1 Tablet
     Route: 048
  6. K-DUR [Concomitant]
     Indication: DRUG USE FOR UNKNOWN INDICATION
     Dosage: 40 Milliequivalents
     Route: 048
  7. FLAGYL [Concomitant]
     Indication: C.DIFFICILE COLITIS
     Dosage: 500 Milligram
     Route: 041
  8. CALCIUM GLUCONATE [Concomitant]
     Indication: DRUG USE FOR UNKNOWN INDICATION
     Route: 065
  9. PANTOPRAZOLE [Concomitant]
     Indication: DRUG USE FOR UNKNOWN INDICATION
     Dosage: 40 Milligram
     Route: 048
  10. SEPTRA DS [Concomitant]
     Indication: PROPHYLAXIS
     Dosage: 1 Tablet
     Route: 048
  11. IMODIUM [Concomitant]
     Indication: DRUG USE FOR UNKNOWN INDICATION
     Dosage: 4 Milligram
     Route: 048
  12. ZOFRAN [Concomitant]
     Indication: DRUG USE FOR UNKNOWN INDICATION
     Dosage: 8 Milligram
     Route: 041
  13. FLUTICASONE [Concomitant]
     Indication: DRUG USE FOR UNKNOWN INDICATION
     Route: 055
  14. SPIRIVA [Concomitant]
     Indication: COPD
     Route: 055
  15. ALBUTEROL [Concomitant]
     Indication: COPD
     Route: 055
  16. ADVAIR [Concomitant]
     Indication: COPD
     Route: 065

REACTIONS (1)
  - Escherichia sepsis [Unknown]
